FAERS Safety Report 18707284 (Version 1)
Quarter: 2021Q1

REPORT INFORMATION
  Report Type: Spontaneous
  Country: US (occurrence: US)
  Receive Date: 20210106
  Receipt Date: 20210106
  Transmission Date: 20210419
  Serious: Yes (Other)
  Sender: FDA-Public Use
  Company Number: US-SIMILASAN CORPORATION-US-2020SIM000044

PATIENT

DRUGS (1)
  1. SEA RINSE EAR CLEANSING SPRAY [Suspect]
     Active Substance: SEA WATER
     Indication: PRODUCT USED FOR UNKNOWN INDICATION
     Dosage: NI/NI/
     Route: 001
     Dates: start: 2020

REACTIONS (2)
  - Deafness unilateral [Not Recovered/Not Resolved]
  - Middle ear effusion [Not Recovered/Not Resolved]
